FAERS Safety Report 10510467 (Version 2)
Quarter: 2015Q1

REPORT INFORMATION
  Report Type: Spontaneous
  Country: US (occurrence: US)
  Receive Date: 20141010
  Receipt Date: 20150106
  Transmission Date: 20150720
  Serious: No
  Sender: FDA-Public Use
  Company Number: US-ELI_LILLY_AND_COMPANY-US201410003293

PATIENT
  Age: 70 Year
  Sex: Male
  Weight: 147 kg

DRUGS (2)
  1. AXIRON [Suspect]
     Active Substance: TESTOSTERONE
     Dosage: UNK, 4 PUMP DAILY
  2. AXIRON [Suspect]
     Active Substance: TESTOSTERONE
     Indication: BLOOD TESTOSTERONE DECREASED
     Dosage: 2 PUMPS UNDER EACH ARM, QD
     Route: 065

REACTIONS (2)
  - Drug administered at inappropriate site [Unknown]
  - Incorrect dose administered [Unknown]
